FAERS Safety Report 20316818 (Version 2)
Quarter: 2022Q1

REPORT INFORMATION
  Report Type: Spontaneous
  Country: US (occurrence: US)
  Receive Date: 20220110
  Receipt Date: 20220113
  Transmission Date: 20220423
  Serious: Yes (Death)
  Sender: FDA-Public Use
  Company Number: US-INCYTE CORPORATION-2022IN000156

PATIENT

DRUGS (1)
  1. JAKAFI [Suspect]
     Active Substance: RUXOLITINIB
     Indication: Polycythaemia vera
     Dosage: 5 MILLIGRAM, (1/2 OF 10 MG TABLET) BID
     Route: 048
     Dates: start: 202111

REACTIONS (2)
  - COVID-19 [Fatal]
  - Wrong technique in product usage process [Unknown]
